FAERS Safety Report 7258608-4 (Version None)
Quarter: 2011Q1

REPORT INFORMATION
  Report Type: 
  Country: None (occurrence: None)
  Receive Date: 20110129
  Receipt Date: 20100502
  Transmission Date: 20110831
  Serious: No
  Sender: FDA-Public Use
  Company Number: US-ABBOTT-08P-163-0494685-00

PATIENT
  Sex: Female
  Weight: 72.64 kg

DRUGS (6)
  1. HUMIRA [Suspect]
     Indication: CROHN'S DISEASE
     Route: 058
     Dates: start: 20081001
  2. PRILOSEC OTC [Concomitant]
     Indication: GASTROOESOPHAGEAL REFLUX DISEASE
     Route: 048
  3. PERCODAN-DEMI [Concomitant]
     Indication: PAIN
     Dosage: UNSURE OF STRENGTH
     Route: 048
  4. CIPRO [Concomitant]
     Indication: ANAL FISSURE EXCISION
     Dosage: UNSURE OF STRENGTH
     Route: 048
     Dates: end: 20080601
  5. CELEXA [Concomitant]
     Indication: DEPRESSION
     Dosage: UNSURE OF STRENGTH
     Route: 048
  6. CIPRO [Concomitant]
     Indication: SURGERY
     Dosage: UNSURE OF STRENGTH
     Route: 048

REACTIONS (4)
  - BRONCHITIS [None]
  - DIZZINESS [None]
  - NAUSEA [None]
  - TREMOR [None]
